FAERS Safety Report 9918959 (Version 1)
Quarter: 2014Q1

REPORT INFORMATION
  Report Type: Spontaneous
  Country: US (occurrence: US)
  Receive Date: 20140224
  Receipt Date: 20140224
  Transmission Date: 20141002
  Serious: No
  Sender: FDA-Public Use
  Company Number: US-BRISTOL-MYERS SQUIBB COMPANY-17274358

PATIENT
  Age: 58 Year
  Sex: Female
  Weight: 65.76 kg

DRUGS (2)
  1. GLUCOPHAGE [Suspect]
     Dates: start: 201301
  2. METFORMIN HCL [Suspect]
     Dates: end: 201210

REACTIONS (2)
  - Insomnia [Not Recovered/Not Resolved]
  - Rash generalised [Unknown]
